FAERS Safety Report 17979587 (Version 2)
Quarter: 2020Q3

REPORT INFORMATION
  Report Type: Spontaneous
  Country: US (occurrence: US)
  Receive Date: 20200703
  Receipt Date: 20200722
  Transmission Date: 20201103
  Serious: Yes (Other)
  Sender: FDA-Public Use
  Company Number: US-B.I. PHARMACEUTICALS,INC./RIDGEFIELD-2020-MR-032158

PATIENT
  Sex: Male

DRUGS (1)
  1. PRADAXA [Suspect]
     Active Substance: DABIGATRAN ETEXILATE MESYLATE
     Indication: PRODUCT USED FOR UNKNOWN INDICATION
     Dosage: NR
     Route: 065
     Dates: start: 202006

REACTIONS (3)
  - Gingival bleeding [Not Recovered/Not Resolved]
  - Surgery [Unknown]
  - Haemorrhagic diathesis [Not Recovered/Not Resolved]

NARRATIVE: CASE EVENT DATE: 2020
